FAERS Safety Report 5092326-6 (Version None)
Quarter: 2006Q3

REPORT INFORMATION
  Report Type: 
  Country: None (occurrence: None)
  Receive Date: 20060829
  Receipt Date: 20020520
  Transmission Date: 20061208
  Serious: Yes (Hospitalization)
  Sender: FDA-Public Use
  Company Number: JP-ALLERGAN-200209575

PATIENT
  Sex: Female

DRUGS (2)
  1. BOTOX [Suspect]
     Indication: BLEPHAROSPASM
     Dosage: DOSE QUANTITY: 16, DOSE UNIT: UNITS
     Route: 030
     Dates: start: 20020220, end: 20020220
  2. CHONDROITIN SULFATE SODIUM [Concomitant]
     Indication: DRUG USE FOR UNKNOWN INDICATION
     Dates: start: 20020220

REACTIONS (6)
  - INJECTION SITE HAEMORRHAGE [None]
  - RETINAL DETACHMENT [None]
  - VISION BLURRED [None]
  - VISUAL ACUITY REDUCED [None]
  - VISUAL FIELD DEFECT [None]
  - VOGT-KOYANAGI-HARADA SYNDROME [None]
